FAERS Safety Report 5266061-5 (Version None)
Quarter: 2007Q1

REPORT INFORMATION
  Report Type: 
  Country: None (occurrence: None)
  Receive Date: 20070315
  Receipt Date: 20070302
  Transmission Date: 20070707
  Serious: Yes (Disabling)
  Sender: FDA-Public Use
  Company Number: PHRM2007FR00747

PATIENT
  Age: 59 Year
  Sex: Male
  Weight: 76 kg

DRUGS (9)
  1. GLEEVEC [Suspect]
     Indication: CHRONIC MYELOID LEUKAEMIA
     Dosage: 400 MG PER DAY
     Route: 048
     Dates: start: 20021010, end: 20051005
  2. GLEEVEC [Suspect]
     Dosage: 800 MG PER DAY
     Route: 048
     Dates: start: 20051005, end: 20060208
  3. GLEEVEC [Suspect]
     Dosage: 600 MG DAILY
     Route: 048
     Dates: start: 20060208, end: 20061003
  4. FUROSEMIDE [Concomitant]
     Indication: OEDEMA
     Dosage: 40 MG DAILY
     Route: 048
     Dates: start: 20060101
  5. ALDACTONE [Concomitant]
     Indication: CARDIAC FAILURE
     Dates: start: 20060201
  6. CARDENSIEL [Concomitant]
     Indication: CARDIAC FAILURE
     Dosage: 2.5 MG PER DAY
     Route: 048
     Dates: start: 20060201
  7. RAMIPRIL [Concomitant]
     Indication: HYPERTENSION
     Dosage: 5 MG DAILY
     Route: 048
     Dates: start: 20060101
  8. LOVENOX [Concomitant]
     Dosage: 0.2 IU PER DAY
     Dates: start: 20060101
  9. ACETAMINOPHEN AND TRAMADOL HCL [Concomitant]
     Indication: PAIN
     Dosage: FROM 1 TO 4 TAB PRN
     Dates: start: 20060101

REACTIONS (1)
  - RENAL CELL CARCINOMA STAGE UNSPECIFIED [None]
